FAERS Safety Report 8141527-9 (Version None)
Quarter: 2012Q1

REPORT INFORMATION
  Report Type: 
  Country: None (occurrence: None)
  Receive Date: 20120216
  Receipt Date: 20120213
  Transmission Date: 20120608
  Serious: Yes (Other)
  Sender: FDA-Public Use
  Company Number: US-BAYER-2012-015446

PATIENT
  Age: 29 Year
  Sex: Female

DRUGS (3)
  1. DROSPIRENONE AND ETHINYL ESTRADIOL [Suspect]
     Dosage: UNK
     Dates: start: 20081101, end: 20091201
  2. YAZ [Suspect]
     Dosage: UNK
     Dates: start: 20080701, end: 20081001
  3. YASMIN [Suspect]

REACTIONS (6)
  - DEPRESSION [None]
  - PULMONARY EMBOLISM [None]
  - DEEP VEIN THROMBOSIS [None]
  - FEAR OF DEATH [None]
  - NERVOUSNESS [None]
  - EMOTIONAL DISTRESS [None]
